FAERS Safety Report 7622644-6 (Version None)
Quarter: 2011Q3

REPORT INFORMATION
  Report Type: 
  Country: None (occurrence: None)
  Receive Date: 20110719
  Receipt Date: 20110719
  Transmission Date: 20111222
  Serious: Yes (Hospitalization, Disabling)
  Sender: FDA-Public Use
  Company Number: None

PATIENT
  Age: 84 Year
  Sex: Male
  Weight: 64.8644 kg

DRUGS (2)
  1. VIGAMOX [Suspect]
     Indication: CATARACT OPERATION
     Dosage: 1 DROP 3 TIMES DAY 7-DAYS
     Dates: start: 20100828, end: 20100801
  2. VIGAMOX [Suspect]
     Indication: CATARACT OPERATION
     Dosage: 1 DROP 3 TIMES DAY 7-DAYS
     Dates: start: 20101108, end: 20101115

REACTIONS (3)
  - MYASTHENIA GRAVIS [None]
  - WEIGHT DECREASED [None]
  - MASTICATION DISORDER [None]
